FAERS Safety Report 21424410 (Version 3)
Quarter: 2023Q2

REPORT INFORMATION
  Report Type: Report from Study
  Country: US (occurrence: US)
  Receive Date: 20221007
  Receipt Date: 20230418
  Transmission Date: 20230722
  Serious: Yes (Hospitalization)
  Sender: FDA-Public Use
  Company Number: US-MORPHOSYS AG-2022-MOR002177-US

PATIENT
  Age: 80 Year
  Sex: Male
  Weight: 78.3 kg

DRUGS (76)
  1. PLAMOTAMAB [Suspect]
     Active Substance: PLAMOTAMAB
     Indication: Diffuse large B-cell lymphoma
     Dosage: 0.8 MILLIGRAM, ONCE WEEKLY
     Route: 042
     Dates: start: 20220503, end: 20220503
  2. PLAMOTAMAB [Suspect]
     Active Substance: PLAMOTAMAB
     Dosage: 2 MILLIGRAM, ONCE WEEKLY
     Route: 042
     Dates: start: 20220510, end: 20220510
  3. PLAMOTAMAB [Suspect]
     Active Substance: PLAMOTAMAB
     Dosage: 20 MILLIGRAM, ONCE WEEKLY
     Route: 042
     Dates: start: 20220517
  4. PLAMOTAMAB [Suspect]
     Active Substance: PLAMOTAMAB
     Dosage: 20 MILLIGRAM, ONCE WEEKLY
     Route: 042
     Dates: start: 20220524, end: 20220524
  5. PLAMOTAMAB [Suspect]
     Active Substance: PLAMOTAMAB
     Dosage: 20 MILLIGRAM, ONCE WEEKLY
     Route: 042
     Dates: start: 20220614, end: 20220614
  6. PLAMOTAMAB [Suspect]
     Active Substance: PLAMOTAMAB
     Dosage: 20 MILLIGRAM, ONCE WEEKLY
     Route: 042
     Dates: start: 20220622, end: 20220622
  7. PLAMOTAMAB [Suspect]
     Active Substance: PLAMOTAMAB
     Dosage: 20 MILLIGRAM
     Route: 042
     Dates: start: 20220809, end: 20220809
  8. PLAMOTAMAB [Suspect]
     Active Substance: PLAMOTAMAB
     Dosage: 20 MILLIGRAM
     Route: 042
     Dates: start: 20220823, end: 20221227
  9. PLAMOTAMAB [Suspect]
     Active Substance: PLAMOTAMAB
     Dosage: 20 MILLIGRAM
     Route: 042
     Dates: end: 20230221
  10. TAFASITAMAB [Suspect]
     Active Substance: TAFASITAMAB
     Indication: Diffuse large B-cell lymphoma
     Dosage: 12 MILLIGRAM (955.2 MG)
     Route: 042
     Dates: start: 20220425, end: 20220425
  11. TAFASITAMAB [Suspect]
     Active Substance: TAFASITAMAB
     Dosage: 12 MILLIGRAM (955.2 MG)
     Route: 042
     Dates: start: 20220429, end: 20220429
  12. TAFASITAMAB [Suspect]
     Active Substance: TAFASITAMAB
     Dosage: 12 MILLIGRAM (955.2 MG)
     Route: 042
     Dates: start: 20220503, end: 20220503
  13. TAFASITAMAB [Suspect]
     Active Substance: TAFASITAMAB
     Dosage: 12 MILLIGRAM (955.2 MG)
     Route: 042
     Dates: start: 20220510, end: 20220510
  14. TAFASITAMAB [Suspect]
     Active Substance: TAFASITAMAB
     Dosage: 12 MILLIGRAM (955.2 MG)
     Route: 042
     Dates: start: 20220517, end: 20220517
  15. TAFASITAMAB [Suspect]
     Active Substance: TAFASITAMAB
     Dosage: 12 MILLIGRAM (955.2 MG)
     Route: 042
     Dates: start: 20220524, end: 20220524
  16. TAFASITAMAB [Suspect]
     Active Substance: TAFASITAMAB
     Dosage: 12 MILLIGRAM (955.2 MG)
     Route: 042
     Dates: start: 20220601, end: 20220601
  17. TAFASITAMAB [Suspect]
     Active Substance: TAFASITAMAB
     Dosage: 12 MILLIGRAM (955.2 MG)
     Route: 042
     Dates: start: 20220614, end: 20220614
  18. TAFASITAMAB [Suspect]
     Active Substance: TAFASITAMAB
     Dosage: 12 MILLIGRAM (955.2 MG)
     Route: 042
     Dates: start: 20220622, end: 20220622
  19. TAFASITAMAB [Suspect]
     Active Substance: TAFASITAMAB
     Dosage: 12 MILLIGRAM/KILOGRAM
     Route: 042
     Dates: start: 20220718, end: 20220718
  20. TAFASITAMAB [Suspect]
     Active Substance: TAFASITAMAB
     Dosage: 12 MILLIGRAM/KILOGRAM
     Route: 042
     Dates: start: 20220809, end: 20220809
  21. TAFASITAMAB [Suspect]
     Active Substance: TAFASITAMAB
     Dosage: 12 MILLIGRAM/KILOGRAM
     Route: 042
     Dates: start: 20220823, end: 20221227
  22. LENALIDOMIDE [Suspect]
     Active Substance: LENALIDOMIDE
     Indication: Diffuse large B-cell lymphoma
     Dosage: 25 MILLIGRAM, QD (DAYS 1 TO 21 PER 28-DAY CYCLE)
     Route: 048
     Dates: start: 20210503, end: 20230203
  23. SODIUM CHLORIDE [Concomitant]
     Active Substance: SODIUM CHLORIDE
     Indication: Product used for unknown indication
     Dosage: BOLUS
     Dates: start: 20220511
  24. DIPHENHYDRAMINE [Concomitant]
     Active Substance: DIPHENHYDRAMINE
     Dosage: UNK
     Dates: start: 20220510, end: 20220510
  25. LIDOCAINE [Concomitant]
     Active Substance: LIDOCAINE
     Dosage: UNK
     Dates: start: 20220510, end: 20220510
  26. ONDANSETRON [Concomitant]
     Active Substance: ONDANSETRON
     Dosage: UNK
     Dates: start: 20220511, end: 20220512
  27. ONDANSETRON [Concomitant]
     Active Substance: ONDANSETRON
     Dosage: UNK
     Dates: start: 20220601, end: 20220604
  28. PANTOPRAZOLE [Concomitant]
     Active Substance: PANTOPRAZOLE
     Indication: Product used for unknown indication
     Dosage: UNK
     Dates: start: 20220402
  29. PANTOPRAZOLE [Concomitant]
     Active Substance: PANTOPRAZOLE
     Dosage: UNK
     Dates: start: 20220601, end: 20220605
  30. POTASSIUM CHLORIDE [Concomitant]
     Active Substance: POTASSIUM CHLORIDE
     Indication: Product used for unknown indication
     Dosage: UNK
     Dates: start: 20220511, end: 20220511
  31. FUROSEMIDE [Concomitant]
     Active Substance: FUROSEMIDE
     Indication: Product used for unknown indication
     Dosage: UNK
     Dates: start: 20220524
  32. PREDNISONE [Concomitant]
     Active Substance: PREDNISONE
     Indication: Product used for unknown indication
     Dosage: UNK
     Dates: start: 20220712, end: 20220819
  33. PREDNISONE [Concomitant]
     Active Substance: PREDNISONE
     Dosage: 40 MG/DAY 6-8 WEEK TAPER
  34. BACTRIM DS [Concomitant]
     Active Substance: SULFAMETHOXAZOLE\TRIMETHOPRIM
     Indication: Pneumocystis jirovecii pneumonia
     Dosage: UNK
     Dates: start: 20220804
  35. ACETAMINOPHEN [Concomitant]
     Active Substance: ACETAMINOPHEN
     Indication: Premedication
     Dosage: UNK
     Dates: start: 20220601, end: 20220601
  36. ACETAMINOPHEN [Concomitant]
     Active Substance: ACETAMINOPHEN
     Dosage: UNK
     Dates: start: 20220809, end: 20220809
  37. ACETAMINOPHEN [Concomitant]
     Active Substance: ACETAMINOPHEN
     Dosage: UNK
     Dates: start: 20220602, end: 20220602
  38. ACETAMINOPHEN [Concomitant]
     Active Substance: ACETAMINOPHEN
     Dosage: SUSPENSION
     Dates: start: 20220602, end: 20220603
  39. ACETAMINOPHEN [Concomitant]
     Active Substance: ACETAMINOPHEN
     Dosage: UNK
     Dates: start: 20220603, end: 20220606
  40. ACETAMINOPHEN [Concomitant]
     Active Substance: ACETAMINOPHEN
     Dosage: UNK
     Dates: start: 20220614, end: 20220614
  41. ACETAMINOPHEN [Concomitant]
     Active Substance: ACETAMINOPHEN
     Dosage: UNK
     Dates: start: 20220622, end: 20220622
  42. ACETAMINOPHEN [Concomitant]
     Active Substance: ACETAMINOPHEN
     Dosage: UNK
     Dates: start: 20220907, end: 20220907
  43. ACETAMINOPHEN [Concomitant]
     Active Substance: ACETAMINOPHEN
     Dosage: UNK
  44. CETIRIZINE [Concomitant]
     Active Substance: CETIRIZINE HYDROCHLORIDE
     Indication: Premedication
     Dosage: UNK
     Dates: start: 20220809, end: 20220809
  45. CETIRIZINE [Concomitant]
     Active Substance: CETIRIZINE HYDROCHLORIDE
     Dosage: UNK
     Dates: start: 20220601, end: 20220601
  46. CETIRIZINE [Concomitant]
     Active Substance: CETIRIZINE HYDROCHLORIDE
     Dosage: UNK
     Dates: start: 20220614, end: 20220614
  47. CETIRIZINE [Concomitant]
     Active Substance: CETIRIZINE HYDROCHLORIDE
     Dosage: UNK
     Dates: start: 20220622, end: 20220622
  48. FAMOTIDINE [Concomitant]
     Active Substance: FAMOTIDINE
     Indication: Gastric ulcer
     Dosage: UNK
     Dates: start: 20220510, end: 20220513
  49. VITAMIN A + D [COLECALCIFEROL;RETINOL] [Concomitant]
     Indication: Product used for unknown indication
     Dosage: UNK
     Dates: start: 20220520, end: 20220520
  50. CEFEPIME [Concomitant]
     Active Substance: CEFEPIME HYDROCHLORIDE
     Dosage: UNK
     Dates: start: 20220519, end: 20220522
  51. ENOXAPARIN [Concomitant]
     Active Substance: ENOXAPARIN
     Dosage: UNK
     Dates: start: 20220520, end: 20220522
  52. VANCOMYCIN [Concomitant]
     Active Substance: VANCOMYCIN
     Dosage: UNK
     Dates: start: 20220519, end: 20220521
  53. CEFAZOLIN [Concomitant]
     Active Substance: CEFAZOLIN
     Dosage: UNK
     Dates: start: 20220602, end: 20220602
  54. METRONIDAZOLE [Concomitant]
     Active Substance: METRONIDAZOLE
     Dosage: UNK
     Dates: start: 20220602, end: 20220602
  55. FENTANYL [Concomitant]
     Active Substance: FENTANYL
     Dosage: UNK
     Dates: start: 20220602, end: 20220602
  56. HYDRALAZINE [Concomitant]
     Active Substance: HYDRALAZINE HYDROCHLORIDE
     Dosage: UNK
     Dates: start: 20220602, end: 20220602
  57. HYDROMORPHONE [Concomitant]
     Active Substance: HYDROMORPHONE
     Dosage: UNK
     Dates: start: 20220602, end: 20220602
  58. LABETALOL [Concomitant]
     Active Substance: LABETALOL\LABETALOL HYDROCHLORIDE
     Dosage: UNK
     Dates: start: 20220602, end: 20220602
  59. MELATONIN [Concomitant]
     Active Substance: MELATONIN
     Dosage: UNK
     Dates: start: 20220604, end: 20220604
  60. OXYCODONE [Concomitant]
     Active Substance: OXYCODONE
     Dosage: UNK
     Dates: start: 20220603, end: 20220604
  61. DEXAMETHASONE [Concomitant]
     Active Substance: DEXAMETHASONE
     Dosage: UNK
     Dates: start: 20220601, end: 20220601
  62. DEXAMETHASONE [Concomitant]
     Active Substance: DEXAMETHASONE
     Dosage: UNK
     Dates: start: 20220614, end: 20220614
  63. DEXAMETHASONE [Concomitant]
     Active Substance: DEXAMETHASONE
     Dosage: UNK
     Dates: start: 20220622, end: 20220622
  64. DEXAMETHASONE [Concomitant]
     Active Substance: DEXAMETHASONE
     Dosage: UNK
     Dates: start: 20220907, end: 20220907
  65. HEPARIN [Concomitant]
     Active Substance: HEPARIN SODIUM
     Dosage: UNK
     Dates: start: 20220603, end: 20220604
  66. NOREPINEPHRINE [Concomitant]
     Active Substance: NOREPINEPHRINE
     Dosage: UNK
     Dates: start: 20220602, end: 20220602
  67. LACTATED RINGERS SOLUTION [Concomitant]
     Active Substance: CALCIUM CHLORIDE\POTASSIUM CHLORIDE\SODIUM CHLORIDE\SODIUM LACTATE
     Dosage: BOLUS
     Dates: start: 20220601
  68. LACTATED RINGERS SOLUTION [Concomitant]
     Active Substance: CALCIUM CHLORIDE\POTASSIUM CHLORIDE\SODIUM CHLORIDE\SODIUM LACTATE
     Dosage: INFUSION
     Dates: start: 20220602, end: 20220602
  69. CALCIUM GLUCONATE [Concomitant]
     Active Substance: CALCIUM GLUCONATE
     Dosage: UNK
     Dates: start: 20220601, end: 20220604
  70. CALCIUM GLUCONATE [Concomitant]
     Active Substance: CALCIUM GLUCONATE
     Dosage: UNK
     Dates: start: 20220604
  71. DEXTROSE\SODIUM CHLORIDE [Concomitant]
     Active Substance: DEXTROSE\SODIUM CHLORIDE
     Dosage: UNK
     Dates: start: 20220602, end: 20220602
  72. MAGNESIUM SULFATE [Concomitant]
     Active Substance: MAGNESIUM SULFATE
     Dosage: UNK
     Dates: start: 20220602, end: 20220603
  73. MOXIFLOXACIN [Concomitant]
     Active Substance: MOXIFLOXACIN
     Dosage: UNK
     Dates: start: 20220523, end: 20220523
  74. AUGMENTIN [Concomitant]
     Active Substance: AMOXICILLIN\CLAVULANATE POTASSIUM
     Dosage: UNK
     Dates: start: 20220524, end: 20220527
  75. ASPIRIN [Concomitant]
     Active Substance: ASPIRIN
     Indication: Deep vein thrombosis
     Dosage: UNK
     Dates: end: 20220601
  76. ASPIRIN [Concomitant]
     Active Substance: ASPIRIN
     Dosage: UNK
     Dates: start: 20220811, end: 20221129

REACTIONS (1)
  - Hypertransaminasaemia [Recovered/Resolved]

NARRATIVE: CASE EVENT DATE: 20220810
